FAERS Safety Report 9804889 (Version 2)
Quarter: 2014Q1

REPORT INFORMATION
  Report Type: Spontaneous
  Country: CL (occurrence: CL)
  Receive Date: 20140108
  Receipt Date: 20140127
  Transmission Date: 20141002
  Serious: Yes (Other)
  Sender: FDA-Public Use
  Company Number: CL-ROCHE-1331015

PATIENT
  Sex: Female

DRUGS (4)
  1. MABTHERA [Suspect]
     Indication: THROMBOCYTOPENIA
     Route: 042
     Dates: start: 201311, end: 201311
  2. METHYLPREDNISOLONE [Concomitant]
  3. CO-TRIMOXAZOLE [Concomitant]
     Route: 065
  4. OMEPRAZOLE [Concomitant]

REACTIONS (2)
  - Hepatitis acute [Recovered/Resolved]
  - Off label use [Unknown]
